FAERS Safety Report 8503234-X (Version None)
Quarter: 2012Q3

REPORT INFORMATION
  Report Type: 
  Country: None (occurrence: None)
  Receive Date: 20120711
  Receipt Date: 20120706
  Transmission Date: 20120928
  Serious: No
  Sender: FDA-Public Use
  Company Number: US-PFIZER INC-2012162426

PATIENT
  Sex: Female

DRUGS (2)
  1. LYRICA [Suspect]
     Indication: PAIN
     Dosage: 50 MG, AT NIGHT
  2. LYRICA [Suspect]
     Dosage: 25 MG AT MORINING; 50 MG, AT NIGHT

REACTIONS (5)
  - MIGRAINE [None]
  - DIZZINESS [None]
  - FEELING ABNORMAL [None]
  - BALANCE DISORDER [None]
  - NAUSEA [None]
